FAERS Safety Report 10424470 (Version 4)
Quarter: 2017Q1

REPORT INFORMATION
  Report Type: Spontaneous
  Country: BR (occurrence: BR)
  Receive Date: 20140902
  Receipt Date: 20170126
  Transmission Date: 20170428
  Serious: Yes (Other)
  Sender: FDA-Public Use
  Company Number: BR-PFIZER INC-2014230491

PATIENT
  Age: 81 Year
  Sex: Male
  Weight: 71 kg

DRUGS (3)
  1. XALACOM [Suspect]
     Active Substance: LATANOPROST\TIMOLOL MALEATE
     Indication: GLAUCOMA
     Dosage: [LATANOPROST 1.5UG] / [TIMOLOL MALEATE 150UG] (ONE DROP IN RIGHT EYE) ONCE DAILY
     Route: 047
     Dates: start: 1972
  2. XALATAN [Suspect]
     Active Substance: LATANOPROST
     Indication: GLAUCOMA
     Dosage: UNK
  3. XALACOM [Suspect]
     Active Substance: LATANOPROST\TIMOLOL MALEATE
     Dosage: UNK

REACTIONS (2)
  - Retinal detachment [Unknown]
  - Blindness unilateral [Unknown]

NARRATIVE: CASE EVENT DATE: 2009
